FAERS Safety Report 7893088-7 (Version None)
Quarter: 2011Q4

REPORT INFORMATION
  Report Type: 
  Country: None (occurrence: None)
  Receive Date: 20111104
  Receipt Date: 20111025
  Transmission Date: 20120403
  Serious: Yes (Hospitalization, Other)
  Sender: FDA-Public Use
  Company Number: US-BAYER-201038945NA

PATIENT
  Age: 26 Year
  Sex: Female
  Weight: 141.4 kg

DRUGS (17)
  1. CELEXA [Concomitant]
     Indication: ANXIETY
     Dosage: 40 MG, UNK
     Route: 048
     Dates: start: 20051006
  2. FLEXERIL [Concomitant]
     Indication: FIBROMYALGIA
     Dosage: 10 MG, UNK
     Route: 048
     Dates: start: 20051008
  3. LISINOPRIL [Concomitant]
     Dosage: 40 MG, UNK
  4. LORATADINE [Concomitant]
     Dosage: 10 MG, UNK
     Route: 048
     Dates: start: 20050906
  5. CELEXA [Concomitant]
     Indication: DEPRESSION
  6. ESIDRIX [Concomitant]
     Dosage: 25 MG, UNK
     Route: 048
  7. CIPROFLOXACIN HCL [Concomitant]
     Dosage: 500 MG, UNK
     Route: 048
     Dates: start: 20050906
  8. FLOVENT HFA [Concomitant]
     Dosage: 220 MCG/24HR, UNK
     Dates: start: 20050907
  9. BUSPAR [Concomitant]
     Dosage: 15 MG, BID
     Route: 048
  10. WELLBUTRIN SR [Concomitant]
     Dosage: 100 MG, BID
     Route: 048
  11. HALOPERIDOL [Concomitant]
     Dosage: 5 MG, UNK
     Route: 048
     Dates: start: 20050905
  12. ABILIFY [Concomitant]
     Dosage: 15 MG, BID
     Route: 048
  13. ALBUTEROL [Concomitant]
     Dosage: 90 MCG/24HR, UNK
     Dates: start: 20050906
  14. YASMIN [Suspect]
     Indication: PRODUCT USED FOR UNKNOWN INDICATION
     Dosage: UNK
     Route: 048
     Dates: start: 20030601, end: 20050101
  15. ALPRAZOLAM [Concomitant]
     Dosage: 0.5 MG, UNK
     Route: 048
  16. BENZTROPINE MESYLATE [Concomitant]
     Dosage: 2 MG, UNK
     Route: 048
     Dates: start: 20050905
  17. SIMVASTATIN [Concomitant]
     Dosage: 40 MG, QD
     Route: 048

REACTIONS (4)
  - THROMBOSIS [None]
  - PULMONARY EMBOLISM [None]
  - MENTAL DISORDER [None]
  - DEEP VEIN THROMBOSIS [None]
